FAERS Safety Report 7437197-5 (Version None)
Quarter: 2011Q2

REPORT INFORMATION
  Report Type: 
  Country: None (occurrence: None)
  Receive Date: 20110426
  Receipt Date: 20110322
  Transmission Date: 20111010
  Serious: Yes (Hospitalization, Other)
  Sender: FDA-Public Use
  Company Number: US-BAYER-2011-026693

PATIENT
  Age: 55 Year
  Sex: Female
  Weight: 145 kg

DRUGS (15)
  1. PRINIVIL [Concomitant]
     Dosage: 2.5 MG DAILY
     Route: 048
  2. ZOCOR [Concomitant]
     Dosage: 20 MG DAILY
     Route: 048
  3. HEPARIN [Concomitant]
     Dosage: UNK
     Dates: start: 20041019
  4. NITROGLYCERIN [Concomitant]
     Dosage: RATE VARIED
     Route: 042
     Dates: start: 20041019
  5. LISINOPRIL [Concomitant]
     Dosage: 5 MG DAILY
     Route: 048
  6. TRASYLOL [Suspect]
     Dosage: 25 ML PER HOUR DRIP
  7. INSULIN 2 [Concomitant]
     Dosage: UNK
     Dates: start: 20041019
  8. MANNITOL [Concomitant]
     Dosage: UNK
     Dates: start: 20041019
  9. TRASYLOL [Suspect]
     Indication: CORONARY ARTERY BYPASS
     Dosage: 200 ML, UNK
     Route: 042
     Dates: start: 20041019, end: 20041019
  10. TRASYLOL [Suspect]
     Dosage: 100 ML, ONCE
     Route: 042
  11. LASIX + K [Concomitant]
     Dosage: UNK
     Route: 042
     Dates: start: 20041019
  12. BLOOD CELLS, PACKED HUMAN [Concomitant]
     Dosage: 1 UNK, UNK
     Dates: start: 20041019
  13. PROTAMINE SULFATE [Concomitant]
     Dosage: 300 MG, UNK
     Route: 042
     Dates: start: 20041019
  14. DOPAMINE HCL [Concomitant]
     Dosage: UNK
     Dates: start: 20041020
  15. NEO-SYNEPHRINE ANTIHISTAMINE COLD [Concomitant]
     Dosage: RATE VARIED
     Dates: start: 20041019

REACTIONS (1)
  - RENAL FAILURE ACUTE [None]
